FAERS Safety Report 15021678 (Version 1)
Quarter: 2018Q2

REPORT INFORMATION
  Report Type: Spontaneous
  Country: US (occurrence: US)
  Receive Date: 20180618
  Receipt Date: 20180618
  Transmission Date: 20180711
  Serious: Yes (Other)
  Sender: FDA-Public Use
  Company Number: US-ALLERGAN-1830578US

PATIENT
  Age: 74 Year
  Sex: Female

DRUGS (4)
  1. ARMOUR THYROID [Suspect]
     Active Substance: THYROID, PORCINE
     Dosage: 60 MG, QD
     Route: 048
  2. ARMOUR THYROID [Suspect]
     Active Substance: THYROID, PORCINE
     Dosage: 1 DF, 5 TIMES PER DAY
     Route: 048
  3. LORAZEPAM. [Concomitant]
     Active Substance: LORAZEPAM
     Indication: PRODUCT USED FOR UNKNOWN INDICATION
     Dosage: UNK
     Route: 048
  4. ARMOUR THYROID [Suspect]
     Active Substance: THYROID, PORCINE
     Indication: HYPOTHYROIDISM
     Dosage: 1 DF, 5 TIMES PER DAY
     Route: 048
     Dates: start: 1976, end: 1996

REACTIONS (33)
  - Dyspnoea [Not Recovered/Not Resolved]
  - Hyperthyroidism [Recovered/Resolved]
  - Limb discomfort [Recovered/Resolved]
  - Drug intolerance [Not Recovered/Not Resolved]
  - Dry eye [Not Recovered/Not Resolved]
  - Headache [Not Recovered/Not Resolved]
  - Drug ineffective [Unknown]
  - Product odour abnormal [Unknown]
  - Macular degeneration [Not Recovered/Not Resolved]
  - Road traffic accident [Recovered/Resolved]
  - Dysphonia [Recovered/Resolved]
  - Dizziness [Not Recovered/Not Resolved]
  - Cataract [Unknown]
  - Pulmonary mass [Recovered/Resolved]
  - Ulcer [Not Recovered/Not Resolved]
  - Multiple allergies [Not Recovered/Not Resolved]
  - Dry skin [Not Recovered/Not Resolved]
  - Diabetes mellitus [Not Recovered/Not Resolved]
  - Cardiac murmur [Not Recovered/Not Resolved]
  - Hypoglycaemia [Not Recovered/Not Resolved]
  - Immune system disorder [Not Recovered/Not Resolved]
  - Food allergy [Recovered/Resolved]
  - Vulvovaginal pruritus [Not Recovered/Not Resolved]
  - Haemorrhage [Recovered/Resolved]
  - Speech disorder [Not Recovered/Not Resolved]
  - Systemic lupus erythematosus [Unknown]
  - Hypertension [Not Recovered/Not Resolved]
  - Malaise [Unknown]
  - Gestational diabetes [Recovered/Resolved]
  - Aortic valve thickening [Not Recovered/Not Resolved]
  - Palpitations [Recovered/Resolved]
  - Menstrual disorder [Recovered/Resolved]
  - Epistaxis [Recovered/Resolved]

NARRATIVE: CASE EVENT DATE: 1996
